FAERS Safety Report 14543080 (Version 2)
Quarter: 2019Q4

REPORT INFORMATION
  Report Type: Spontaneous
  Country: GB (occurrence: GB)
  Receive Date: 20180216
  Receipt Date: 20191120
  Transmission Date: 20200122
  Serious: Yes (Hospitalization)
  Sender: FDA-Public Use
  Company Number: GB-TEVA-2018-GB-858503

PATIENT
  Age: 46 Year
  Sex: Female
  Weight: 47 kg

DRUGS (17)
  1. TACROLIMUS. [Suspect]
     Active Substance: TACROLIMUS
     Route: 065
     Dates: start: 20171101
  2. AMIODARONE [Suspect]
     Active Substance: AMIODARONE
     Dosage: 900 MILLIGRAM DAILY; 900MG OVER 24 HOURS (AFTER INITIAL LOADING DOSE)
     Route: 065
     Dates: start: 20171118, end: 20171119
  3. COTRIMOXAZOLE [Suspect]
     Active Substance: SULFAMETHOXAZOLE\TRIMETHOPRIM
     Indication: PNEUMOCYSTIS JIROVECII PNEUMONIA
     Dosage: 3360 MILLIGRAM DAILY;
     Route: 065
     Dates: start: 20171115, end: 20171119
  4. AMLODIPINE [Concomitant]
     Active Substance: AMLODIPINE BESYLATE
  5. DOXYCYCLINE. [Suspect]
     Active Substance: DOXYCYCLINE
     Dosage: 200 MILLIGRAM DAILY;
     Route: 048
     Dates: start: 20171111, end: 20171118
  6. SERTRALINE [Concomitant]
     Active Substance: SERTRALINE HYDROCHLORIDE
  7. AZATHIOPRINE. [Concomitant]
     Active Substance: AZATHIOPRINE
  8. ACETYLSALICYLIC ACID [Concomitant]
     Active Substance: ASPIRIN
  9. OMEPRAZOLE. [Concomitant]
     Active Substance: OMEPRAZOLE
  10. PREDNISOLONE. [Concomitant]
     Active Substance: PREDNISOLONE
  11. CLONAZEPAM. [Concomitant]
     Active Substance: CLONAZEPAM
  12. PROGRAF [Concomitant]
     Active Substance: TACROLIMUS
  13. CASPOFUNGIN [Suspect]
     Active Substance: CASPOFUNGIN
     Dosage: 50 MILLIGRAM DAILY;
     Route: 042
     Dates: start: 20171114, end: 20171118
  14. MEROPENEM TRIHYDRATE [Suspect]
     Active Substance: MEROPENEM
     Dosage: 2000 MILLIGRAM DAILY;
     Route: 042
     Dates: start: 20171113, end: 20171118
  15. LISINOPRIL. [Concomitant]
     Active Substance: LISINOPRIL
  16. FOLIC ACID. [Concomitant]
     Active Substance: FOLIC ACID
  17. TRIMETHOPRIM. [Concomitant]
     Active Substance: TRIMETHOPRIM

REACTIONS (2)
  - Nikolsky^s sign [Unknown]
  - Toxic epidermal necrolysis [Recovering/Resolving]

NARRATIVE: CASE EVENT DATE: 20171120
